FAERS Safety Report 24723489 (Version 1)
Quarter: 2024Q4

REPORT INFORMATION
  Report Type: Spontaneous
  Country: US (occurrence: US)
  Receive Date: 20241211
  Receipt Date: 20241211
  Transmission Date: 20250115
  Serious: No
  Sender: SANOFI AVENTIS
  Company Number: US-SA-2024SA365222

PATIENT
  Sex: Female

DRUGS (1)
  1. LANTUS SOLOSTAR [Suspect]
     Active Substance: INSULIN GLARGINE
     Indication: Type 2 diabetes mellitus
     Dosage: 15-28 IU, QD
     Dates: start: 2022

REACTIONS (5)
  - Blood glucose fluctuation [Unknown]
  - Blood glucose increased [Unknown]
  - Intentional product misuse [Unknown]
  - Product storage error [Unknown]
  - Product dispensing error [Unknown]
